FAERS Safety Report 7002220-9 (Version None)
Quarter: 2010Q3

REPORT INFORMATION
  Report Type: 
  Country: None (occurrence: None)
  Receive Date: 20100920
  Receipt Date: 20100331
  Transmission Date: 20110219
  Serious: No
  Sender: FDA-Public Use
  Company Number: US-ASTRAZENECA-2010SE15952

PATIENT
  Age: 12951 Day
  Sex: Female

DRUGS (5)
  1. SEROQUEL [Suspect]
     Route: 048
     Dates: start: 20060322
  2. SERAX [Concomitant]
     Dosage: 15 MG IN MORNING AND 30 MG AT BEDTIME
     Dates: start: 20060322
  3. LAMICTAL [Concomitant]
     Dosage: 50 MG IN MORNING AND 150 MG AT BEDTIME
     Dates: start: 20060322
  4. REGLAN [Concomitant]
     Dates: start: 20060425
  5. PHENERGAN [Concomitant]

REACTIONS (11)
  - ANXIETY [None]
  - CYCLOTHYMIC DISORDER [None]
  - DEPRESSION [None]
  - DIABETES MELLITUS [None]
  - DRUG EXPOSURE DURING PREGNANCY [None]
  - DYSPHORIA [None]
  - GESTATIONAL DIABETES [None]
  - HALLUCINATION, AUDITORY [None]
  - INSOMNIA [None]
  - MAJOR DEPRESSION [None]
  - PANIC ATTACK [None]
